FAERS Safety Report 19829570 (Version 1)
Quarter: 2021Q3

REPORT INFORMATION
  Report Type: Spontaneous
  Country: NL (occurrence: NL)
  Receive Date: 20210914
  Receipt Date: 20210914
  Transmission Date: 20211014
  Serious: Yes (Other)
  Sender: FDA-Public Use
  Company Number: NL-MYLANLABS-2021M1062418

PATIENT
  Age: 75 Month
  Sex: Female

DRUGS (16)
  1. ISOTRETINOIN. [Suspect]
     Active Substance: ISOTRETINOIN
     Dosage: 160 MILLIGRAM/SQ. METER, QD
     Route: 065
  2. ISOTRETINOIN. [Suspect]
     Active Substance: ISOTRETINOIN
     Dosage: 160 MILLIGRAM/SQ. METER, QD
     Route: 065
  3. ISOTRETINOIN. [Suspect]
     Active Substance: ISOTRETINOIN
     Dosage: 160 MILLIGRAM/SQ. METER, QD
     Route: 065
  4. SARGRAMOSTIM [Suspect]
     Active Substance: SARGRAMOSTIM
     Dosage: 250 MICROGRAM/SQ. METER, QD
     Route: 058
  5. QARZIBA [Suspect]
     Active Substance: DINUTUXIMAB BETA
     Dosage: 20 MILLIGRAM/SQ. METER
     Route: 042
  6. INTERLEUKIN?2 [Suspect]
     Active Substance: ALDESLEUKIN
     Dosage: 4.5 X 10^6 IU/M2/DAY
     Route: 042
  7. ISOTRETINOIN. [Suspect]
     Active Substance: ISOTRETINOIN
     Dosage: 160 MILLIGRAM/SQ. METER, QD
     Route: 065
  8. QARZIBA [Suspect]
     Active Substance: DINUTUXIMAB BETA
     Indication: NEUROBLASTOMA
     Dosage: 20 MILLIGRAM/SQ. METER
     Route: 042
  9. QARZIBA [Suspect]
     Active Substance: DINUTUXIMAB BETA
     Dosage: 20 MILLIGRAM/SQ. METER
     Route: 042
  10. QARZIBA [Suspect]
     Active Substance: DINUTUXIMAB BETA
     Dosage: 20 MILLIGRAM/SQ. METER
     Route: 042
  11. SARGRAMOSTIM [Suspect]
     Active Substance: SARGRAMOSTIM
     Indication: NEUROBLASTOMA
     Dosage: 250 MICROGRAM/SQ. METER, QD
     Route: 058
  12. SARGRAMOSTIM [Suspect]
     Active Substance: SARGRAMOSTIM
     Dosage: 250 MICROGRAM/SQ. METER, QD
     Route: 058
  13. ISOTRETINOIN. [Suspect]
     Active Substance: ISOTRETINOIN
     Indication: NEUROBLASTOMA
     Dosage: 160 MILLIGRAM/SQ. METER, QD
     Route: 065
  14. INTERLEUKIN?2 [Suspect]
     Active Substance: ALDESLEUKIN
     Indication: NEUROBLASTOMA
     Dosage: 3.0 X 10^6 IU/M2/DAY
     Route: 042
  15. ISOTRETINOIN. [Suspect]
     Active Substance: ISOTRETINOIN
     Dosage: 160 MILLIGRAM/SQ. METER, QD
     Route: 065
  16. QARZIBA [Suspect]
     Active Substance: DINUTUXIMAB BETA
     Dosage: 20 MILLIGRAM/SQ. METER
     Route: 042

REACTIONS (5)
  - Pyrexia [Unknown]
  - Tachycardia [Unknown]
  - Cough [Unknown]
  - Pain [Unknown]
  - Device related bacteraemia [Unknown]
